FAERS Safety Report 9596126 (Version 2)
Quarter: 2013Q4

REPORT INFORMATION
  Report Type: Spontaneous
  Country: US (occurrence: US)
  Receive Date: 20131004
  Receipt Date: 20131004
  Transmission Date: 20140711
  Serious: No
  Sender: FDA-Public Use
  Company Number: US-MYLANLABS-2012S1018828

PATIENT
  Age: 88 Year
  Sex: Female

DRUGS (4)
  1. CLINDAMYCIN/BENZOYL PEROXIDE GEL [Suspect]
     Indication: ACNE
     Route: 061
     Dates: start: 20120912, end: 20120913
  2. CLINDAMYCIN/BENZOYL PEROXIDE GEL [Suspect]
     Indication: MILIA
     Route: 061
     Dates: start: 20120912, end: 20120913
  3. LEVOTHYROXINE [Concomitant]
  4. METOPROLOL [Concomitant]

REACTIONS (5)
  - Application site vesicles [Not Recovered/Not Resolved]
  - Application site pruritus [Not Recovered/Not Resolved]
  - Application site erythema [Recovered/Resolved]
  - Vertigo [Recovered/Resolved]
  - Dermatitis contact [Recovered/Resolved]
